FAERS Safety Report 12684921 (Version 1)
Quarter: 2016Q3

REPORT INFORMATION
  Report Type: Spontaneous
  Country: US (occurrence: US)
  Receive Date: 20160825
  Receipt Date: 20160825
  Transmission Date: 20161109
  Serious: No
  Sender: FDA-Public Use
  Company Number: US-TARO-2016TAR00234

PATIENT
  Age: 77 Year
  Sex: Male
  Weight: 73.16 kg

DRUGS (1)
  1. METRONIDAZOLE GEL USP 0.75% [Suspect]
     Active Substance: METRONIDAZOLE
     Indication: ROSACEA
     Dosage: 1 DOSAGE UNITS, 3X/DAY
     Route: 061
     Dates: start: 20160107, end: 201602

REACTIONS (3)
  - Drug ineffective [Not Recovered/Not Resolved]
  - Rosacea [Recovering/Resolving]
  - Inappropriate schedule of drug administration [Recovered/Resolved]

NARRATIVE: CASE EVENT DATE: 201601
